FAERS Safety Report 26196447 (Version 1)
Quarter: 2025Q4

REPORT INFORMATION
  Report Type: Spontaneous
  Country: CN (occurrence: CN)
  Receive Date: 20251224
  Receipt Date: 20251224
  Transmission Date: 20260118
  Serious: Yes (Other)
  Sender: ROCHE
  Company Number: CN-ROCHE-10000458867

PATIENT
  Age: 57 Year
  Sex: Female

DRUGS (18)
  1. BEVACIZUMAB [Suspect]
     Active Substance: BEVACIZUMAB
     Indication: Hepatic cancer
  2. BEVACIZUMAB [Suspect]
     Active Substance: BEVACIZUMAB
  3. BEVACIZUMAB [Suspect]
     Active Substance: BEVACIZUMAB
  4. BEVACIZUMAB [Suspect]
     Active Substance: BEVACIZUMAB
  5. BEVACIZUMAB [Suspect]
     Active Substance: BEVACIZUMAB
  6. BEVACIZUMAB [Suspect]
     Active Substance: BEVACIZUMAB
  7. ATEZOLIZUMAB [Suspect]
     Active Substance: ATEZOLIZUMAB
     Indication: Hepatic cancer
     Route: 041
     Dates: start: 20250826, end: 20250826
  8. ATEZOLIZUMAB [Suspect]
     Active Substance: ATEZOLIZUMAB
     Route: 041
     Dates: start: 20250501
  9. ATEZOLIZUMAB [Suspect]
     Active Substance: ATEZOLIZUMAB
     Route: 041
  10. ATEZOLIZUMAB [Suspect]
     Active Substance: ATEZOLIZUMAB
     Route: 041
  11. ATEZOLIZUMAB [Suspect]
     Active Substance: ATEZOLIZUMAB
     Route: 041
  12. ATEZOLIZUMAB [Suspect]
     Active Substance: ATEZOLIZUMAB
     Route: 041
  13. CAMRELIZUMAB [Concomitant]
     Active Substance: CAMRELIZUMAB
  14. CAMRELIZUMAB [Concomitant]
     Active Substance: CAMRELIZUMAB
  15. LENVATINIB [Concomitant]
     Active Substance: LENVATINIB
  16. DONAFENIB [Concomitant]
     Active Substance: DONAFENIB
  17. METHYLPREDNISOLONE [Concomitant]
     Active Substance: METHYLPREDNISOLONE
  18. oral prednisone [Concomitant]

REACTIONS (1)
  - Drug-induced liver injury [Recovering/Resolving]

NARRATIVE: CASE EVENT DATE: 20251017
